FAERS Safety Report 15735878 (Version 1)
Quarter: 2018Q4

REPORT INFORMATION
  Report Type: Spontaneous
  Country: FR (occurrence: FR)
  Receive Date: 20181218
  Receipt Date: 20181218
  Transmission Date: 20190205
  Serious: Yes (Hospitalization)
  Sender: FDA-Public Use
  Company Number: FR-JNJFOC-20181215493

PATIENT
  Age: 45 Year
  Sex: Male

DRUGS (1)
  1. DARZALEX [Suspect]
     Active Substance: DARATUMUMAB
     Indication: TRANSPLANT REJECTION
     Route: 042
     Dates: start: 20181026, end: 20181107

REACTIONS (2)
  - Bronchospasm [Recovered/Resolved]
  - Pancytopenia [Recovered/Resolved]
